FAERS Safety Report 8403268-X (Version None)
Quarter: 2012Q2

REPORT INFORMATION
  Report Type: 
  Country: None (occurrence: None)
  Receive Date: 20120601
  Receipt Date: 20120523
  Transmission Date: 20120825
  Serious: Yes (Hospitalization, Disabling, Other)
  Sender: FDA-Public Use
  Company Number: US-MERCK-1203USA03339

PATIENT
  Age: 68 Year
  Sex: Female
  Weight: 62 kg

DRUGS (15)
  1. FOSAMAX [Suspect]
     Route: 048
     Dates: start: 20000720, end: 20110101
  2. VITAMIN D (UNSPECIFIED) [Concomitant]
     Route: 065
  3. [THERAPY UNSPECIFIED] [Concomitant]
     Indication: HYPERTENSION
     Route: 065
  4. OMEGA-3 MARINE TRIGLYCERIDES [Concomitant]
     Route: 065
  5. ALENDRONATE SODIUM [Suspect]
     Indication: OSTEOPOROSIS
     Route: 048
     Dates: start: 20081201
  6. ALENDRONATE SODIUM [Suspect]
     Indication: OSTEOPENIA
     Route: 048
     Dates: start: 20081201
  7. CALCIUM (UNSPECIFIED) AND VITAMIN D (UNSPECIFIED) [Concomitant]
     Route: 065
  8. VITAMINS (UNSPECIFIED) [Concomitant]
     Route: 065
  9. EVENING PRIMROSE OIL [Concomitant]
     Route: 065
  10. FOSAMAX [Suspect]
     Indication: OSTEOPENIA
     Route: 048
     Dates: start: 19990322
  11. [THERAPY UNSPECIFIED] [Concomitant]
     Indication: BLOOD CHOLESTEROL INCREASED
     Route: 065
  12. FOSAMAX [Suspect]
     Indication: OSTEOPOROSIS
     Route: 048
     Dates: start: 19990322
  13. FOSAMAX [Suspect]
     Route: 048
     Dates: start: 20000720, end: 20110101
  14. HORMONES (UNSPECIFIED) [Concomitant]
     Route: 065
     Dates: start: 19980301, end: 20070601
  15. ASPIRIN [Concomitant]
     Route: 065

REACTIONS (34)
  - FEMUR FRACTURE [None]
  - VERTIGO [None]
  - UTERINE ENLARGEMENT [None]
  - STRESS FRACTURE [None]
  - LIMB DEFORMITY [None]
  - VULVOVAGINAL DISCOMFORT [None]
  - SINUSITIS [None]
  - PATHOLOGICAL FRACTURE [None]
  - OTITIS EXTERNA FUNGAL [None]
  - OESTROGEN DEFICIENCY [None]
  - ARTHROPOD STING [None]
  - ANGIOEDEMA [None]
  - FRACTURE NONUNION [None]
  - DERMATITIS CONTACT [None]
  - CYSTITIS HAEMORRHAGIC [None]
  - CERVICAL SPINAL STENOSIS [None]
  - LOW TURNOVER OSTEOPATHY [None]
  - URTICARIA [None]
  - RASH PAPULOSQUAMOUS [None]
  - PROCEDURAL PAIN [None]
  - SYNCOPE [None]
  - APPENDIX DISORDER [None]
  - PRURITUS [None]
  - URINARY TRACT INFECTION [None]
  - OSTEOPOROSIS [None]
  - GASTROENTERITIS VIRAL [None]
  - CATARACT [None]
  - OSTEOARTHRITIS [None]
  - BURSITIS [None]
  - BLADDER SPASM [None]
  - IMPAIRED HEALING [None]
  - RHINITIS PERENNIAL [None]
  - URTICARIA CHRONIC [None]
  - BLOOD PRESSURE INCREASED [None]
